FAERS Safety Report 7365072-3 (Version None)
Quarter: 2011Q1

REPORT INFORMATION
  Report Type: 
  Country: None (occurrence: None)
  Receive Date: 20110321
  Receipt Date: 20110318
  Transmission Date: 20110831
  Serious: Yes (Hospitalization, Other)
  Sender: FDA-Public Use
  Company Number: FR-AMGEN-FRASP2011013363

PATIENT
  Age: 49 Year
  Sex: Female

DRUGS (2)
  1. NEULASTA [Suspect]
     Indication: CHEMOTHERAPY
     Dosage: UNK
     Dates: end: 20110315
  2. TAXOTERE [Concomitant]

REACTIONS (4)
  - WEIGHT DECREASED [None]
  - ABASIA [None]
  - NEUROPATHY PERIPHERAL [None]
  - ACUTE RESPIRATORY DISTRESS SYNDROME [None]
